FAERS Safety Report 6388530-7 (Version None)
Quarter: 2009Q4

REPORT INFORMATION
  Report Type: 
  Country: None (occurrence: None)
  Receive Date: 20091001
  Receipt Date: 20091001
  Transmission Date: 20100525
  Serious: Yes (Death)
  Sender: FDA-Public Use
  Company Number: None

PATIENT
  Age: 28 Year
  Sex: Male
  Weight: 85 kg

DRUGS (1)
  1. FENTANYL [Suspect]
     Indication: PROCEDURAL PAIN
     Dosage: 50 MCG, LOCK OUT 15 MINUTES 4 HOUR MAX 800 MCG IV APPROXIMATELY 24 HOURS
     Route: 042
     Dates: start: 20090923, end: 20090924

REACTIONS (1)
  - DEATH [None]
